FAERS Safety Report 7892612-8 (Version None)
Quarter: 2011Q4

REPORT INFORMATION
  Report Type: 
  Country: None (occurrence: None)
  Receive Date: 20111102
  Receipt Date: 20111011
  Transmission Date: 20120403
  Serious: Yes (Hospitalization, Other)
  Sender: FDA-Public Use
  Company Number: 2011PROUSA00665

PATIENT
  Age: 74 Year
  Sex: Male
  Weight: 105.2 kg

DRUGS (9)
  1. CLOBETASOL PROPIONATE (CLOBVETASOL PROPIONATE) [Concomitant]
  2. PROVENGE [Suspect]
     Indication: PROSTATE CANCER METASTATIC
     Dosage: 250 ML, SINGLE, INTRAVENOUS
     Route: 042
     Dates: start: 20110922, end: 20110922
  3. MEGACE (MIGESTROL ACETATE) [Concomitant]
  4. ZOVIRAX [Concomitant]
  5. LISINOPRIL [Concomitant]
  6. RANITIDINE HCL (RANITIDINE HYDROCHLORIDE) [Concomitant]
  7. VESICARE [Concomitant]
  8. EFFECOR (VENLAFAXINE HYDROCHLORIDE) [Concomitant]
  9. MULTIVITAMIN (ASCORBIC ACID, CALCIUKM PANTOTHENATE, ERGOCACIFEROL) [Concomitant]

REACTIONS (6)
  - HYPERLIPIDAEMIA [None]
  - GLUCOSE TOLERANCE IMPAIRED [None]
  - DEVICE RELATED SEPSIS [None]
  - LOBAR PNEUMONIA [None]
  - ENTEROBACTER SEPSIS [None]
  - ANXIETY [None]
